FAERS Safety Report 9962440 (Version 1)
Quarter: 2014Q1

REPORT INFORMATION
  Report Type: Report from Study
  Country: US (occurrence: US)
  Receive Date: 20140305
  Receipt Date: 20140305
  Transmission Date: 20141002
  Serious: No
  Sender: FDA-Public Use
  Company Number: US-ABBVIE-13P-163-1115313-00

PATIENT
  Sex: Female
  Weight: 90.8 kg

DRUGS (3)
  1. HUMIRA [Suspect]
     Indication: RHEUMATOID ARTHRITIS
     Dates: start: 2011, end: 201209
  2. HUMIRA [Suspect]
     Dates: start: 201212, end: 201302
  3. HUMIRA [Suspect]
     Dates: start: 2013

REACTIONS (4)
  - Rash [Recovered/Resolved]
  - Drug ineffective [Recovered/Resolved]
  - Local swelling [Not Recovered/Not Resolved]
  - Skin burning sensation [Not Recovered/Not Resolved]
